FAERS Safety Report 16912178 (Version 3)
Quarter: 2022Q4

REPORT INFORMATION
  Report Type: Spontaneous
  Country: DE (occurrence: DE)
  Receive Date: 20191014
  Receipt Date: 20221114
  Transmission Date: 20230112
  Serious: Yes (Other)
  Sender: FDA-Public Use
  Company Number: DE-BOEHRINGERINGELHEIM-2019-BI-106430

PATIENT
  Age: 42 Year
  Sex: Male

DRUGS (8)
  1. JARDIANCE [Suspect]
     Active Substance: EMPAGLIFLOZIN
     Indication: Diabetic metabolic decompensation
     Dosage: 1-0-0-0
     Route: 048
     Dates: start: 201812
  2. JARDIANCE [Suspect]
     Active Substance: EMPAGLIFLOZIN
     Indication: Type 2 diabetes mellitus
  3. INSULIN NOS [Concomitant]
     Active Substance: INSULIN NOS
     Indication: Type 2 diabetes mellitus
  4. AMLODIPINE BESYLATE [Concomitant]
     Active Substance: AMLODIPINE BESYLATE
     Indication: Product used for unknown indication
     Dosage: 1-0-1-0
  5. ASPIRIN [Concomitant]
     Active Substance: ASPIRIN
     Indication: Product used for unknown indication
     Dosage: 1X1
  6. BISOPROLOL [Concomitant]
     Active Substance: BISOPROLOL
     Indication: Product used for unknown indication
     Dosage: 1X1,
  7. TORSEMIDE [Concomitant]
     Active Substance: TORSEMIDE
     Indication: Product used for unknown indication
     Dosage: 1-1-0-0
  8. ATORVASTATIN [Concomitant]
     Active Substance: ATORVASTATIN
     Indication: Product used for unknown indication
     Dosage: 0-0-0-1

REACTIONS (4)
  - Pancreatitis acute [Unknown]
  - Pancreatitis necrotising [Unknown]
  - Metabolic acidosis [Unknown]
  - Weight decreased [Unknown]

NARRATIVE: CASE EVENT DATE: 20190401
